FAERS Safety Report 6632385-X (Version None)
Quarter: 2010Q1

REPORT INFORMATION
  Report Type: 
  Country: None (occurrence: None)
  Receive Date: 20100312
  Receipt Date: 20100304
  Transmission Date: 20100710
  Serious: Yes (Hospitalization)
  Sender: FDA-Public Use
  Company Number: JP-MERCK-1002USA01173

PATIENT
  Age: 80 Year
  Sex: Female

DRUGS (11)
  1. JANUVIA [Suspect]
     Indication: DIABETES MELLITUS
     Route: 048
     Dates: start: 20091219, end: 20100123
  2. ENBREL [Concomitant]
     Indication: MUSCULOSKELETAL PAIN
     Route: 058
     Dates: start: 20060401
  3. PREDONINE [Concomitant]
     Indication: MUSCULOSKELETAL PAIN
     Route: 048
  4. LASIX [Concomitant]
     Route: 065
  5. SPIRONOLACTONE [Concomitant]
     Indication: OEDEMA
     Route: 048
  6. METHOTREXATE [Concomitant]
     Indication: MUSCULOSKELETAL PAIN
     Route: 048
     Dates: start: 20050604
  7. AMARYL [Concomitant]
     Route: 048
     Dates: start: 20020201
  8. GLUCOBAY [Concomitant]
     Route: 048
  9. ACTOS [Concomitant]
     Route: 048
  10. NIVADIL [Concomitant]
     Route: 048
  11. SORELMON [Concomitant]
     Indication: MUSCULOSKELETAL PAIN
     Route: 048
     Dates: start: 20060210

REACTIONS (1)
  - DECREASED APPETITE [None]
